FAERS Safety Report 18868053 (Version 2)
Quarter: 2021Q1

REPORT INFORMATION
  Report Type: Report from Study
  Country: US (occurrence: US)
  Receive Date: 20210209
  Receipt Date: 20210312
  Transmission Date: 20210420
  Serious: Yes (Other)
  Sender: FDA-Public Use
  Company Number: US-UCBSA-2021004850

PATIENT

DRUGS (1)
  1. LEVETIRACETAM. [Suspect]
     Active Substance: LEVETIRACETAM
     Indication: EPILEPSY

REACTIONS (5)
  - Generalised tonic-clonic seizure [Unknown]
  - Mood swings [Recovering/Resolving]
  - Intentional self-injury [Unknown]
  - Depression [Recovering/Resolving]
  - Anger [Unknown]
